FAERS Safety Report 23717723 (Version 1)
Quarter: 2024Q2

REPORT INFORMATION
  Report Type: Other
  Country: JP (occurrence: JP)
  Receive Date: 20240408
  Receipt Date: 20240408
  Transmission Date: 20240716
  Serious: Yes (Hospitalization, Other)
  Sender: FDA-Public Use
  Company Number: JP-CHUGAI-A2014056904ROCHE

PATIENT
  Age: 63 Year
  Sex: Female
  Weight: 42 kg

DRUGS (16)
  1. PERJETA [Suspect]
     Active Substance: PERTUZUMAB
     Indication: Breast cancer
     Dosage: DOSAGE IS UNCERTAIN.
     Route: 041
     Dates: start: 20140811, end: 20140811
  2. PERJETA [Suspect]
     Active Substance: PERTUZUMAB
     Indication: Breast cancer
     Route: 041
     Dates: start: 20140901, end: 20141104
  3. HERCEPTIN [Suspect]
     Active Substance: TRASTUZUMAB
     Indication: Breast cancer
     Route: 041
     Dates: start: 20090928, end: 20100712
  4. HERCEPTIN [Suspect]
     Active Substance: TRASTUZUMAB
     Indication: Breast cancer
     Route: 041
     Dates: start: 20100802, end: 20111219
  5. HERCEPTIN [Suspect]
     Active Substance: TRASTUZUMAB
     Indication: Breast cancer
     Route: 041
     Dates: start: 20120116, end: 20121029
  6. HERCEPTIN [Suspect]
     Active Substance: TRASTUZUMAB
     Route: 041
     Dates: start: 20130401, end: 20130401
  7. HERCEPTIN [Suspect]
     Active Substance: TRASTUZUMAB
     Route: 041
     Dates: start: 20130422, end: 20141104
  8. KADCYLA [Suspect]
     Active Substance: ADO-TRASTUZUMAB EMTANSINE
     Indication: HER2 positive breast cancer
     Route: 065
  9. HALAVEN [Suspect]
     Active Substance: ERIBULIN MESYLATE
     Indication: Breast cancer
     Dosage: DOSAGE IS UNCERTAIN.
     Route: 041
     Dates: start: 20140317, end: 20140901
  10. ABRAXANE [Suspect]
     Active Substance: PACLITAXEL
     Indication: Breast cancer
     Route: 041
     Dates: start: 20130401, end: 20140217
  11. EPIRUBICIN HYDROCHLORIDE [Suspect]
     Active Substance: EPIRUBICIN HYDROCHLORIDE
     Indication: HER2 positive breast cancer
     Route: 065
  12. METHYLCOBALAMIN [Concomitant]
     Active Substance: METHYLCOBALAMIN
     Indication: Neuropathy peripheral
     Route: 048
     Dates: start: 20130826
  13. XELODA [Concomitant]
     Active Substance: CAPECITABINE
     Indication: Breast cancer
     Route: 048
     Dates: start: 20100802, end: 20111219
  14. XELODA [Concomitant]
     Active Substance: CAPECITABINE
     Indication: Breast cancer
     Route: 048
     Dates: start: 20121112, end: 201303
  15. NAVELBINE [Concomitant]
     Active Substance: VINORELBINE TARTRATE
     Indication: Breast cancer
     Route: 041
     Dates: start: 20120116, end: 20121029
  16. TYKERB [Concomitant]
     Active Substance: LAPATINIB DITOSYLATE
     Indication: Breast cancer
     Route: 048
     Dates: start: 20121112, end: 201303

REACTIONS (3)
  - Cardiac failure [Not Recovered/Not Resolved]
  - Cardiac dysfunction [Not Recovered/Not Resolved]
  - Neuropathy peripheral [Unknown]

NARRATIVE: CASE EVENT DATE: 20130506
